FAERS Safety Report 9426373 (Version 3)
Quarter: 2013Q3

REPORT INFORMATION
  Report Type: Spontaneous
  Country: US (occurrence: US)
  Receive Date: 20130730
  Receipt Date: 20130918
  Transmission Date: 20140515
  Serious: Yes (Hospitalization)
  Sender: FDA-Public Use
  Company Number: US-AMGEN-USASP2013052214

PATIENT
  Age: 69 Year
  Sex: Female
  Weight: 106.5 kg

DRUGS (1)
  1. SENSIPAR [Suspect]
     Indication: PRODUCT USED FOR UNKNOWN INDICATION
     Dosage: 60 MG, BID
     Route: 048
     Dates: start: 20121221

REACTIONS (6)
  - Fluid overload [Recovered/Resolved]
  - Lethargy [Recovered/Resolved]
  - Respiratory failure [Recovered/Resolved]
  - Tremor [Recovered/Resolved]
  - Tinnitus [Recovered/Resolved]
  - Incorrect dose administered [Unknown]
